FAERS Safety Report 4352682-0 (Version None)
Quarter: 2004Q2

REPORT INFORMATION
  Report Type: 
  Country: None (occurrence: None)
  Receive Date: 20040429
  Receipt Date: 20040423
  Transmission Date: 20050107
  Serious: Yes (Hospitalization)
  Sender: FDA-Public Use
  Company Number: TCI2004A01822

PATIENT
  Age: 60 Year
  Sex: Female

DRUGS (2)
  1. ACTOS [Suspect]
     Indication: DIABETES MELLITUS
     Dosage: 30 MG (30 MG, 1 D)
     Route: 048
     Dates: start: 20030401
  2. BASEN (VOGLIBOSE) [Concomitant]

REACTIONS (2)
  - OEDEMA PERIPHERAL [None]
  - PLEURAL EFFUSION [None]
